FAERS Safety Report 5658188-0 (Version None)
Quarter: 2008Q1

REPORT INFORMATION
  Report Type: 
  Country: None (occurrence: None)
  Receive Date: 20080310
  Receipt Date: 20070103
  Transmission Date: 20080703
  Serious: No
  Sender: FDA-Public Use
  Company Number: US-BAYER-200710038BCC

PATIENT
  Age: 81 Year
  Sex: Female
  Weight: 64 kg

DRUGS (5)
  1. ALEVE [Suspect]
     Indication: ARTHRALGIA
     Route: 048
     Dates: start: 20061201
  2. KOSHER FOODS WHICH ARE HIGH IN SALT [Suspect]
  3. TYLENOL [Concomitant]
  4. HOME SHOPPING MULTIVITAMIN [Concomitant]
  5. OMEGA 3 VITAMIN [Concomitant]

REACTIONS (1)
  - DIZZINESS [None]
